FAERS Safety Report 17885967 (Version 1)
Quarter: 2020Q2

REPORT INFORMATION
  Report Type: Report from Study
  Country: US (occurrence: US)
  Receive Date: 20200611
  Receipt Date: 20200611
  Transmission Date: 20200714
  Serious: Yes (Hospitalization)
  Sender: FDA-Public Use
  Company Number: US-EISAI MEDICAL RESEARCH-EC-2020-074310

PATIENT
  Age: 74 Year
  Sex: Female

DRUGS (14)
  1. VITAMIN D3 [Concomitant]
     Active Substance: CHOLECALCIFEROL
  2. OLOPATADINE. [Concomitant]
     Active Substance: OLOPATADINE
  3. COENZYME Q10 [Concomitant]
     Active Substance: UBIDECARENONE
  4. LENVIMA [Suspect]
     Active Substance: LENVATINIB
     Route: 048
     Dates: start: 2020
  5. LENVIMA [Suspect]
     Active Substance: LENVATINIB
     Indication: ENDOMETRIAL CANCER
     Route: 048
     Dates: start: 20200421, end: 202005
  6. PANTOPRAZOLE [Concomitant]
     Active Substance: PANTOPRAZOLE
  7. LYRICA [Concomitant]
     Active Substance: PREGABALIN
  8. IBUPROFEN. [Concomitant]
     Active Substance: IBUPROFEN
  9. RESTASIS [Concomitant]
     Active Substance: CYCLOSPORINE
  10. FERROUS SULFATE. [Concomitant]
     Active Substance: FERROUS SULFATE
  11. GRALISE [Concomitant]
     Active Substance: GABAPENTIN
  12. METOPROLOL. [Concomitant]
     Active Substance: METOPROLOL
  13. CALCIUM + D [Concomitant]
     Active Substance: CALCIUM\VITAMIN D
  14. DULOXETINE. [Concomitant]
     Active Substance: DULOXETINE

REACTIONS (5)
  - Dizziness [Recovered/Resolved]
  - Fatigue [Recovering/Resolving]
  - Neck pain [Unknown]
  - Memory impairment [Recovered/Resolved]
  - Speech disorder [Unknown]

NARRATIVE: CASE EVENT DATE: 2020
